FAERS Safety Report 19465711 (Version 5)
Quarter: 2022Q1

REPORT INFORMATION
  Report Type: Spontaneous
  Country: US (occurrence: US)
  Receive Date: 20210626
  Receipt Date: 20220225
  Transmission Date: 20220423
  Serious: No
  Sender: FDA-Public Use
  Company Number: US-TAKEDA-2021TUS038087

PATIENT
  Sex: Female
  Weight: 69.388 kg

DRUGS (1)
  1. NINLARO [Suspect]
     Active Substance: IXAZOMIB CITRATE
     Indication: Plasma cell myeloma
     Dosage: 3 MILLIGRAM, 1/WEEK
     Route: 048
     Dates: start: 20210423

REACTIONS (11)
  - Alopecia [Unknown]
  - Visual impairment [Unknown]
  - Confusional state [Recovered/Resolved]
  - Memory impairment [Unknown]
  - Tremor [Unknown]
  - Decreased appetite [Unknown]
  - Dizziness [Unknown]
  - Fatigue [Unknown]
  - Back pain [Unknown]
  - Rash [Not Recovered/Not Resolved]
  - Diarrhoea [Unknown]
